FAERS Safety Report 15391646 (Version 1)
Quarter: 2018Q3

REPORT INFORMATION
  Report Type: Spontaneous
  Country: US (occurrence: US)
  Receive Date: 20180917
  Receipt Date: 20180917
  Transmission Date: 20181010
  Serious: Yes (Other)
  Sender: FDA-Public Use
  Company Number: PHEH2018US038137

PATIENT
  Sex: Male

DRUGS (1)
  1. EVEROLIMUS. [Suspect]
     Active Substance: EVEROLIMUS
     Indication: ANAPLASTIC THYROID CANCER
     Dosage: UNK
     Route: 065

REACTIONS (5)
  - Product use complaint [Unknown]
  - Condition aggravated [Not Recovered/Not Resolved]
  - Metastases to lung [Unknown]
  - Product use in unapproved indication [Unknown]
  - Obstructive airways disorder [Unknown]
